FAERS Safety Report 15843308 (Version 3)
Quarter: 2019Q1

REPORT INFORMATION
  Report Type: Report from Study
  Country: JP (occurrence: JP)
  Receive Date: 20190118
  Receipt Date: 20190208
  Transmission Date: 20190417
  Serious: Yes (Hospitalization)
  Sender: FDA-Public Use
  Company Number: JP-PFIZER INC-2019016731

PATIENT
  Age: 6 Year
  Sex: Male
  Weight: 17 kg

DRUGS (10)
  1. URSO [Concomitant]
     Active Substance: URSODIOL
     Indication: HEPATIC FUNCTION ABNORMAL
     Dosage: 50 MG, 3X/DAY
     Route: 048
     Dates: start: 20181120
  2. OXINORM [OXYCODONE HYDROCHLORIDE] [Concomitant]
     Indication: PAIN
     Dosage: 5 MG, AS NEEDED
     Route: 048
     Dates: start: 20181214
  3. CRIZOTINIB [Suspect]
     Active Substance: CRIZOTINIB
     Dosage: 250 MG, 2X/DAY
     Route: 048
     Dates: start: 20181127, end: 20181228
  4. CALONAL [Concomitant]
     Active Substance: ACETAMINOPHEN
     Indication: PAIN
     Dosage: 200 MG, AS NEEDED
     Route: 048
     Dates: start: 20181123
  5. OXYCONTIN [Concomitant]
     Active Substance: OXYCODONE HYDROCHLORIDE
     Indication: PAIN
     Dosage: 60 MG, 2X/DAY
     Route: 048
     Dates: start: 20181106
  6. NOVAMIN [PROCHLORPERAZINE MALEATE] [Concomitant]
     Indication: VOMITING
     Dosage: 0.5 TABLET, 1X/DAY
     Route: 048
     Dates: start: 20181114
  7. GLYCERIN [GLYCEROL] [Concomitant]
     Indication: CONSTIPATION
     Dosage: 30 ML, AS NEEDED
     Route: 054
     Dates: start: 20181118
  8. MAGNESIUM OXIDE. [Concomitant]
     Active Substance: MAGNESIUM OXIDE
     Indication: CONSTIPATION
     Dosage: 250 MG, AS NEEDED
     Route: 048
     Dates: start: 20181120
  9. CRIZOTINIB [Suspect]
     Active Substance: CRIZOTINIB
     Indication: NEUROBLASTOMA RECURRENT
     Dosage: 250 MG, 2X/DAY
     Route: 048
     Dates: start: 20181113
  10. DAIPHEN [Concomitant]
     Active Substance: SULFAMETHOXAZOLE\TRIMETHOPRIM
     Indication: INFECTION PROPHYLAXIS
     Dosage: 1 DF, TWICE DAILY EACH AFTER BREAKFAST AND SUPPER ON EVERY MONDAY, WEDNESDAY, AND FRIDAY
     Route: 048
     Dates: start: 201809

REACTIONS (1)
  - Bacterial infection [Recovered/Resolved]

NARRATIVE: CASE EVENT DATE: 20181228
